FAERS Safety Report 4549959-2 (Version None)
Quarter: 2005Q1

REPORT INFORMATION
  Report Type: 
  Country: None (occurrence: None)
  Receive Date: 20050110
  Receipt Date: 20050103
  Transmission Date: 20050727
  Serious: Yes (Other)
  Sender: FDA-Public Use
  Company Number: 2005-01-0293

PATIENT
  Age: 46 Year
  Sex: Female

DRUGS (2)
  1. PEG-INTRON [Suspect]
     Indication: HEPATITIS C
     Dosage: 96 MCG QW SUBCUTANEOUS
     Route: 058
     Dates: start: 20011101, end: 20020501
  2. REBETOL [Suspect]
     Indication: HEPATITIS C
     Dosage: 1000 MG DAILY ORAL
     Route: 048
     Dates: start: 20011101, end: 20020501

REACTIONS (11)
  - AXILLARY MASS [None]
  - CARPAL TUNNEL SYNDROME [None]
  - CHONDROPATHY [None]
  - CONNECTIVE TISSUE DISORDER [None]
  - HYPOTHYROIDISM [None]
  - MASS EXCISION [None]
  - OEDEMA [None]
  - SOFT TISSUE DISORDER [None]
  - TENDERNESS [None]
  - TENOSYNOVITIS [None]
  - VULVOVAGINAL DRYNESS [None]
